FAERS Safety Report 19283030 (Version 1)
Quarter: 2021Q2

REPORT INFORMATION
  Report Type: Spontaneous
  Country: US (occurrence: US)
  Receive Date: 20210520
  Receipt Date: 20210520
  Transmission Date: 20210717
  Serious: No
  Sender: FDA-Public Use
  Company Number: None

PATIENT
  Age: 38 Year
  Sex: Female
  Weight: 57.6 kg

DRUGS (1)
  1. CETIRIZINE HYDROCHLORIDE ALL DAY ALLERGY 24 HOUR RELIEF [Suspect]
     Active Substance: CETIRIZINE HYDROCHLORIDE
     Indication: MULTIPLE ALLERGIES
     Dosage: ?          QUANTITY:1 CAPSULE(S);?
     Route: 048
     Dates: start: 20210501, end: 20210514

REACTIONS (2)
  - Muscle spasms [None]
  - Affective disorder [None]

NARRATIVE: CASE EVENT DATE: 20210514
